FAERS Safety Report 7524613-3 (Version None)
Quarter: 2011Q2

REPORT INFORMATION
  Report Type: 
  Country: None (occurrence: None)
  Receive Date: 20110601
  Receipt Date: 20110601
  Transmission Date: 20111010
  Serious: Yes (Other)
  Sender: FDA-Public Use
  Company Number: None

PATIENT
  Age: 32 Year
  Sex: Female
  Weight: 77.1115 kg

DRUGS (1)
  1. SEPTOCAINE [Suspect]
     Indication: ANAESTHESIA
     Dosage: 1.8 CC LOCAL INFILTRATION (ORAL CAVITY)
     Route: 048
     Dates: start: 20110314

REACTIONS (2)
  - PARAESTHESIA [None]
  - INFILTRATION ANAESTHESIA [None]
